FAERS Safety Report 16606532 (Version 2)
Quarter: 2019Q3

REPORT INFORMATION
  Report Type: Spontaneous
  Country: US (occurrence: US)
  Receive Date: 20190722
  Receipt Date: 20190812
  Transmission Date: 20191004
  Serious: Yes (Death, Hospitalization, Other)
  Sender: FDA-Public Use
  Company Number: US-009507513-1907USA010785

PATIENT
  Age: 74 Year

DRUGS (1)
  1. ZERBAXA [Suspect]
     Active Substance: CEFTOLOZANE SULFATE\TAZOBACTAM SODIUM
     Indication: PROPHYLAXIS
     Dosage: 3 GRAM, Q8H
     Route: 042
     Dates: start: 20180710, end: 20180714

REACTIONS (2)
  - Cardio-respiratory arrest [Fatal]
  - Adverse event [Unknown]

NARRATIVE: CASE EVENT DATE: 20180714
